FAERS Safety Report 18310363 (Version 5)
Quarter: 2020Q4

REPORT INFORMATION
  Report Type: Spontaneous
  Country: JP (occurrence: JP)
  Receive Date: 20200925
  Receipt Date: 20201130
  Transmission Date: 20210113
  Serious: Yes (Hospitalization, Other)
  Sender: FDA-Public Use
  Company Number: JP-ROCHE-2684507

PATIENT
  Sex: Male

DRUGS (1)
  1. ROZLYTREK [Suspect]
     Active Substance: ENTRECTINIB
     Indication: COLON CANCER
     Route: 048
     Dates: start: 20200831

REACTIONS (8)
  - Pyrexia [Recovered/Resolved]
  - Embolism venous [Unknown]
  - Oedema [Recovered/Resolved]
  - Increased appetite [Recovered/Resolved]
  - Pulmonary embolism [Recovered/Resolved]
  - Dizziness [Recovering/Resolving]
  - Metastases to ovary [Unknown]
  - Ascites [Unknown]
